FAERS Safety Report 5635444-3 (Version None)
Quarter: 2008Q1

REPORT INFORMATION
  Report Type: 
  Country: None (occurrence: None)
  Receive Date: 20080131
  Receipt Date: 20071127
  Transmission Date: 20080703
  Serious: No
  Sender: FDA-Public Use
  Company Number: US200711005762

PATIENT
  Age: 61 Year
  Sex: Female

DRUGS (4)
  1. BYETTA [Suspect]
     Indication: DIABETES MELLITUS
     Dosage: 5 UG, 2/D, SUBCUTANEOUS
     Route: 058
     Dates: start: 20071121
  2. GLIPIZIDE [Concomitant]
  3. INSULIN (INSULIN) [Concomitant]
  4. DRUGS USED IN DIABETES [Concomitant]

REACTIONS (4)
  - ACCIDENTAL NEEDLE STICK [None]
  - INJECTION SITE HAEMORRHAGE [None]
  - INJECTION SITE PAIN [None]
  - TREMOR [None]
